FAERS Safety Report 10196588 (Version 1)
Quarter: 2014Q2

REPORT INFORMATION
  Report Type: Report from Study
  Country: CA (occurrence: CA)
  Receive Date: 20140527
  Receipt Date: 20140527
  Transmission Date: 20141212
  Serious: Yes (Hospitalization)
  Sender: FDA-Public Use
  Company Number: CA-UCBSA-123062

PATIENT
  Age: 87 Year
  Sex: Female
  Weight: 73 kg

DRUGS (17)
  1. CIMZIA [Suspect]
     Indication: RHEUMATOID ARTHRITIS
     Route: 058
     Dates: start: 20110909
  2. CIMZIA [Suspect]
     Indication: RHEUMATOID ARTHRITIS
     Route: 058
     Dates: start: 20110729, end: 20110826
  3. PREDNISONE [Concomitant]
     Indication: RHEUMATOID ARTHRITIS
     Route: 048
     Dates: start: 201009
  4. METFORMIN [Concomitant]
     Indication: DIABETES MELLITUS
     Route: 048
  5. PERINDOPRIL [Concomitant]
     Indication: HYPERTENSION
     Route: 048
  6. HYDROCHLOROTHIAZIDE [Concomitant]
     Indication: HYPERTENSION
     Route: 048
  7. DOMPERIDONE [Concomitant]
     Indication: GASTRIC DISORDER
     Route: 048
  8. PLAVIX [Concomitant]
     Indication: ANTICOAGULANT THERAPY
     Route: 048
  9. TECTA [Concomitant]
     Indication: GASTRIC DISORDER
     Route: 048
  10. ADALAT XL [Concomitant]
     Indication: HYPERTENSION
     Route: 048
  11. LIPITOR [Concomitant]
     Indication: BLOOD CHOLESTEROL
     Dosage: AT BEDTIME
     Route: 048
  12. ELTROXIN [Concomitant]
     Indication: THYROID DISORDER
     Route: 048
  13. VITAMIN C [Concomitant]
     Indication: VITAMIN SUPPLEMENTATION
     Route: 048
  14. VITAMIN E [Concomitant]
     Indication: VITAMIN SUPPLEMENTATION
     Dosage: 800 U ONCE DAILY
     Route: 048
  15. MULTIVITAMINS [Concomitant]
     Indication: VITAMIN SUPPLEMENTATION
     Route: 048
  16. ECASA [Concomitant]
     Indication: THROMBOSIS
     Route: 048
  17. TYLENOL [Concomitant]
     Indication: PAIN
     Route: 048

REACTIONS (2)
  - Arthritis [Recovering/Resolving]
  - Urinary tract infection [Recovering/Resolving]
